FAERS Safety Report 8346278-3 (Version None)
Quarter: 2012Q2

REPORT INFORMATION
  Report Type: 
  Country: None (occurrence: None)
  Receive Date: 20120509
  Receipt Date: 20120501
  Transmission Date: 20120825
  Serious: Yes (Hospitalization, Other)
  Sender: FDA-Public Use
  Company Number: US-ASTELLAS-2012US004428

PATIENT
  Sex: Male
  Weight: 99 kg

DRUGS (5)
  1. PROTEIN PUMP INHIBITOR [Suspect]
     Indication: PRODUCT USED FOR UNKNOWN INDICATION
     Dosage: UNK
     Route: 065
  2. PROGRAF [Suspect]
     Dosage: 5 MG, Q12 HOURS
     Route: 048
  3. PROGRAF [Suspect]
     Dosage: 1 MG, UID/QD
     Route: 048
  4. PROGRAF [Suspect]
     Indication: RENAL TRANSPLANT
     Dosage: 6 MG, BID
     Route: 048
     Dates: start: 20100312
  5. ANTI-THYMOCYTE GLOBULIN RABBIT NOS [Suspect]
     Indication: KIDNEY TRANSPLANT REJECTION
     Dosage: 75 MG, UNKNOWN/D
     Route: 042

REACTIONS (8)
  - THROMBOCYTOPENIA [None]
  - LEUKOPENIA [None]
  - TREATMENT NONCOMPLIANCE [None]
  - ANAEMIA OF CHRONIC DISEASE [None]
  - HYPERTENSION [None]
  - KIDNEY TRANSPLANT REJECTION [None]
  - DIARRHOEA [None]
  - DIABETES MELLITUS [None]
